FAERS Safety Report 24869687 (Version 1)
Quarter: 2025Q1

REPORT INFORMATION
  Report Type: Other
  Country: GB (occurrence: GB)
  Receive Date: 20250121
  Receipt Date: 20250121
  Transmission Date: 20250408
  Serious: Yes (Disabling, Other)
  Sender: GLENMARK
  Company Number: None

PATIENT

DRUGS (3)
  1. MONTELUKAST SODIUM [Suspect]
     Active Substance: MONTELUKAST SODIUM
     Indication: Product used for unknown indication
     Dosage: UNK, 4/5MG ONCE A DAY AT NIGHT, DOSAGE FORM: TABLET
     Route: 065
     Dates: start: 20230925, end: 20240401
  2. LORATADINE [Concomitant]
     Active Substance: LORATADINE
     Indication: Multiple allergies
     Route: 065
     Dates: start: 20220101
  3. FLUTICASONE [Concomitant]
     Active Substance: FLUTICASONE
     Indication: Asthma
     Route: 065
     Dates: start: 20220101

REACTIONS (16)
  - Regressive behaviour [Recovered/Resolved]
  - Nocturnal fear [Recovered/Resolved]
  - Decreased eye contact [Recovered/Resolved]
  - Coordination abnormal [Unknown]
  - Balance disorder [Recovered/Resolved]
  - Tic [Not Recovered/Not Resolved]
  - Psychomotor hyperactivity [Not Recovered/Not Resolved]
  - Mood altered [Recovered/Resolved with Sequelae]
  - Obsessive-compulsive disorder [Recovered/Resolved]
  - Hallucination [Recovered/Resolved]
  - Restlessness [Unknown]
  - Ill-defined disorder [Unknown]
  - Emotional disorder [Unknown]
  - Impulsive behaviour [Unknown]
  - Disturbance in attention [Unknown]
  - Product dose omission issue [Unknown]

NARRATIVE: CASE EVENT DATE: 20240401
